FAERS Safety Report 15807404 (Version 2)
Quarter: 2019Q3

REPORT INFORMATION
  Report Type: Spontaneous
  Country: US (occurrence: US)
  Receive Date: 20190110
  Receipt Date: 20190711
  Transmission Date: 20191004
  Serious: No
  Sender: FDA-Public Use
  Company Number: US-PFIZER INC-2019014092

PATIENT
  Age: 81 Year
  Sex: Female

DRUGS (7)
  1. GLYCOPYRROLATE. [Concomitant]
     Active Substance: GLYCOPYRROLATE
     Indication: DROOLING
     Dosage: 1 MG, AS NEEDED(1 MG PO PRN (AS NEEDED))
     Route: 048
     Dates: start: 20181222
  2. CEPHALEXIN. [Concomitant]
     Active Substance: CEPHALEXIN
     Indication: URINARY TRACT INFECTION
     Dosage: 250 MG, 4X/DAY(250 MG PO Q6H (EVERY 6 HOURS))
     Route: 048
     Dates: start: 20181222
  3. GLYCOPYRROLATE. [Concomitant]
     Active Substance: GLYCOPYRROLATE
     Indication: SECRETION DISCHARGE
  4. MORPHINE SULFATE. [Concomitant]
     Active Substance: MORPHINE SULFATE
     Indication: BACK PAIN
  5. MORPHINE SULFATE. [Concomitant]
     Active Substance: MORPHINE SULFATE
     Indication: PAIN
  6. IBRANCE [Suspect]
     Active Substance: PALBOCICLIB
     Indication: BREAST CANCER FEMALE
     Dosage: 125 MG, CYCLIC (QD (EVERYDAY DAYS 1-21)
     Route: 048
     Dates: start: 20181205
  7. MORPHINE SULFATE. [Concomitant]
     Active Substance: MORPHINE SULFATE
     Indication: FRACTURE
     Dosage: 15 MG, AS NEEDED(Q4H (EVERY 4 HOURS) PRN(AS NEEDED))
     Route: 048
     Dates: start: 20181222

REACTIONS (1)
  - Neoplasm progression [Unknown]
